FAERS Safety Report 9263976 (Version 1)
Quarter: 2013Q2

REPORT INFORMATION
  Report Type: Spontaneous
  Country: CN (occurrence: CN)
  Receive Date: 20130430
  Receipt Date: 20130430
  Transmission Date: 20140414
  Serious: Yes (Other)
  Sender: FDA-Public Use
  Company Number: CN-GLAXOSMITHKLINE-B0887609A

PATIENT
  Sex: Male

DRUGS (1)
  1. LAMIVUDINE-HBV [Suspect]
     Indication: HEPATITIS B
     Route: 048

REACTIONS (2)
  - Laboratory test abnormal [Unknown]
  - Hepatocellular injury [Unknown]
